FAERS Safety Report 21806201 (Version 1)
Quarter: 2023Q1

REPORT INFORMATION
  Report Type: Spontaneous
  Country: US (occurrence: US)
  Receive Date: 20230102
  Receipt Date: 20230102
  Transmission Date: 20230418
  Serious: No
  Sender: FDA-Public Use
  Company Number: US-009507513-2212USA010748

PATIENT
  Age: 64 Year
  Sex: Female

DRUGS (1)
  1. KEYTRUDA [Suspect]
     Active Substance: PEMBROLIZUMAB
     Indication: Endometrial cancer
     Dosage: 200 MG/21 DAYS
     Route: 042
     Dates: start: 20220722, end: 20221223

REACTIONS (1)
  - Blood creatinine increased [Unknown]

NARRATIVE: CASE EVENT DATE: 20220101
